FAERS Safety Report 21104130 (Version 1)
Quarter: 2022Q3

REPORT INFORMATION
  Report Type: Spontaneous
  Country: PL (occurrence: PL)
  Receive Date: 20220720
  Receipt Date: 20220720
  Transmission Date: 20221027
  Serious: Yes (Hospitalization, Other)
  Sender: FDA-Public Use
  Company Number: PL-MLMSERVICE-2022070736548311

PATIENT
  Age: 55 Year
  Sex: Female

DRUGS (17)
  1. TACROLIMUS [Suspect]
     Active Substance: TACROLIMUS
     Indication: Immunosuppressant drug therapy
     Dates: start: 201905, end: 2019
  2. AMLODIPINE [Concomitant]
     Active Substance: AMLODIPINE BESYLATE
     Indication: Hypertension
     Dates: start: 201908
  3. CAPTOPRIL [Concomitant]
     Active Substance: CAPTOPRIL
     Indication: Hypertension
     Dates: start: 201906
  4. FONDAPARINUX [Concomitant]
     Active Substance: FONDAPARINUX
     Indication: Anticoagulant therapy
     Dates: start: 201905
  5. FLUCONAZOLE [Concomitant]
     Active Substance: FLUCONAZOLE
     Indication: Antifungal prophylaxis
     Dosage: 1X600 MG
     Dates: start: 201905
  6. PREDNISONE [Concomitant]
     Active Substance: PREDNISONE
     Indication: Immunosuppressant drug therapy
     Dates: start: 201905
  7. VALGANCICLOVIR [Concomitant]
     Active Substance: VALGANCICLOVIR
     Indication: Cytomegalovirus infection
     Dates: start: 2019
  8. INSULIN GLARGINE [Concomitant]
     Active Substance: INSULIN GLARGINE
     Indication: Diabetes mellitus
     Dosage: AT NIGHT
     Dates: start: 201907
  9. ORNITHINE [Concomitant]
     Active Substance: ORNITHINE
     Dates: start: 201905
  10. MICAFUNGIN [Concomitant]
     Active Substance: MICAFUNGIN
     Indication: Oesophageal candidiasis
     Dates: start: 201906
  11. INSULIN LISPRO [Concomitant]
     Active Substance: INSULIN LISPRO
     Indication: Diabetes mellitus
     Dosage: DINNER 6- 8 UNITS
     Dates: start: 201907
  12. NITROGLYCERIN [Concomitant]
     Active Substance: NITROGLYCERIN
     Indication: Hypertension
     Dosage: CONTINOUS
     Dates: start: 201906
  13. VANCOMYCIN [Concomitant]
     Active Substance: VANCOMYCIN
     Indication: Antibiotic prophylaxis
     Dosage: 2X 1 G
     Dates: start: 201905
  14. METHYLPREDNISOLONE [Concomitant]
     Active Substance: METHYLPREDNISOLONE
     Indication: Immunosuppressant drug therapy
     Dates: start: 201905
  15. TAZOBACTAM [Concomitant]
     Active Substance: TAZOBACTAM
     Indication: Antibiotic prophylaxis
     Dosage: 3 X4.5 G
     Dates: start: 201905
  16. MEROPENEM [Concomitant]
     Active Substance: MEROPENEM
     Indication: Antibiotic prophylaxis
     Dosage: 3 X1 G
     Dates: start: 201905
  17. INSULIN GLARGINE [Concomitant]
     Active Substance: INSULIN GLARGINE
     Indication: Diabetes mellitus
     Dosage: AT NIGHT
     Dates: start: 201907

REACTIONS (3)
  - Overdose [Unknown]
  - Chronic kidney disease [Recovering/Resolving]
  - Toxicity to various agents [Unknown]

NARRATIVE: CASE EVENT DATE: 20190901
